FAERS Safety Report 6491951-5 (Version None)
Quarter: 2009Q4

REPORT INFORMATION
  Report Type: 
  Country: None (occurrence: None)
  Receive Date: 20091208
  Receipt Date: 20091125
  Transmission Date: 20100525
  Serious: Yes (Hospitalization)
  Sender: FDA-Public Use
  Company Number: 8048587

PATIENT
  Sex: Male
  Weight: 90 kg

DRUGS (1)
  1. KEPPRA [Suspect]
     Dosage: (4000 MG, 8 TABLETS OF 500 MG ORAL)
     Route: 048
     Dates: start: 20090630, end: 20090630

REACTIONS (6)
  - CONVULSION [None]
  - INTENTIONAL OVERDOSE [None]
  - SOMNOLENCE [None]
  - SUICIDE ATTEMPT [None]
  - VERTIGO [None]
  - VISUAL IMPAIRMENT [None]
